FAERS Safety Report 4820798-8 (Version None)
Quarter: 2005Q4

REPORT INFORMATION
  Report Type: 
  Country: None (occurrence: None)
  Receive Date: 20051104
  Receipt Date: 20051026
  Transmission Date: 20060501
  Serious: Yes (Other)
  Sender: FDA-Public Use
  Company Number: US-JNJFOC-20051100136

PATIENT
  Age: 29 Year
  Sex: Male

DRUGS (1)
  1. FENTANYL [Suspect]
     Indication: INTENTIONAL DRUG MISUSE
     Route: 065

REACTIONS (3)
  - LOSS OF CONSCIOUSNESS [None]
  - OVERDOSE [None]
  - RESPIRATORY ARREST [None]
